FAERS Safety Report 13719213 (Version 2)
Quarter: 2017Q3

REPORT INFORMATION
  Report Type: Spontaneous
  Country: FR (occurrence: FR)
  Receive Date: 20170705
  Receipt Date: 20170706
  Transmission Date: 20171127
  Serious: Yes (Hospitalization, Other)
  Sender: FDA-Public Use
  Company Number: FR-GILEAD-2017-0280463

PATIENT
  Age: 38 Year
  Sex: Female

DRUGS (5)
  1. IMUREL                             /00001501/ [Concomitant]
     Active Substance: AZATHIOPRINE SODIUM
     Dosage: 100 MG, QD
  2. ENTOCORT [Interacting]
     Active Substance: BUDESONIDE
     Indication: AUTOIMMUNE HEPATITIS
     Dosage: 3 MG, QD
     Route: 048
     Dates: start: 201608, end: 20170411
  3. IMUREL                             /00001501/ [Concomitant]
     Active Substance: AZATHIOPRINE SODIUM
     Dosage: 50 MG, QD
  4. STRIBILD [Suspect]
     Active Substance: COBICISTAT\ELVITEGRAVIR\EMTRICITABINE\TENOFOVIR DISOPROXIL FUMARATE
     Indication: HIV INFECTION
     Dosage: 1 DF, QD
     Route: 048
     Dates: start: 201609
  5. ENTOCORT [Interacting]
     Active Substance: BUDESONIDE
     Dosage: 6 MG, UNK
     Route: 048
     Dates: start: 201604, end: 201608

REACTIONS (5)
  - Osteoporosis [Recovered/Resolved with Sequelae]
  - Drug interaction [Recovered/Resolved]
  - Spinal fracture [Recovered/Resolved with Sequelae]
  - Cushing^s syndrome [Not Recovered/Not Resolved]
  - Osteonecrosis [Not Recovered/Not Resolved]
